FAERS Safety Report 7324271-7 (Version None)
Quarter: 2011Q1

REPORT INFORMATION
  Report Type: 
  Country: None (occurrence: None)
  Receive Date: 20110301
  Receipt Date: 20110223
  Transmission Date: 20110831
  Serious: Yes (Disabling, Other)
  Sender: FDA-Public Use
  Company Number: IT-AMGEN LTD.-QUU437557

PATIENT
  Age: 57 Year
  Sex: Female

DRUGS (2)
  1. LANSOPRAZOLE [Concomitant]
  2. NPLATE [Suspect]
     Indication: THROMBOCYTOPENIA
     Dosage: 3 A?G/KG, PRN
     Dates: start: 20100416, end: 20100729

REACTIONS (2)
  - MUSCULAR WEAKNESS [None]
  - ARTHRALGIA [None]
